FAERS Safety Report 11089373 (Version 2)
Quarter: 2015Q2

REPORT INFORMATION
  Report Type: Spontaneous
  Country: NL (occurrence: NL)
  Receive Date: 20150505
  Receipt Date: 20150520
  Transmission Date: 20150821
  Serious: Yes (Hospitalization, Other)
  Sender: FDA-Public Use
  Company Number: NL-ACCORD-030495

PATIENT
  Age: 39 Year
  Sex: Female

DRUGS (14)
  1. MOMETASONE/MOMETASONE FUROATE [Concomitant]
     Dosage: 1 X PER DAY
  2. CYTOMEL [Concomitant]
     Active Substance: LIOTHYRONINE SODIUM
     Dosage: 2 X PER DAY 6.25 MICROGRAM
  3. MACROGOL [Concomitant]
     Active Substance: POLYETHYLENE GLYCOLS
  4. FROMIREX [Concomitant]
     Dosage: BY AGREEMENT?TIMES PER 2.5 MG
  5. ZOLPIDEM TARTRATE SANDOZ [Concomitant]
     Dosage: 3 X PER WEEK OP MA/WO/VR, 1 X PER DAY 1ST
  6. ACCORD QUETIAPINE [Suspect]
     Active Substance: QUETIAPINE
     Indication: PRODUCT USED FOR UNKNOWN INDICATION
     Dosage: 1DD3
     Dates: start: 2011
  7. LAXTRA ORANGE [Concomitant]
     Dosage: 1DD1
  8. ACETYLSALICYLIC ACID [Concomitant]
     Active Substance: ASPIRIN
     Dosage: 1DD1
  9. OMEPRAZOLE ACTAVIS [Concomitant]
     Active Substance: OMEPRAZOLE
     Dosage: 1 X PER DAY 1
  10. THYRAX DUO [Concomitant]
     Dosage: 1 X PER DAY 1ST
  11. AMITRIPTYLINE HCL CF [Concomitant]
     Dosage: 1 X PER DAY 8ST
  12. ETHINYLESTRADIOL/LEVONORGESTREL [Concomitant]
     Dosage: 1 X PER DAY 1ST?CAPLET 30/150 MICROGRAM
  13. CAMCOLIT [Concomitant]
     Dosage: 1 X PER DAY 2ND
  14. PROMETHAZINE TEVA [Concomitant]
     Dosage: 25 MG COATED TABLET (1 X PER DAY 2)

REACTIONS (2)
  - Lung disorder [Recovering/Resolving]
  - Organising pneumonia [Recovering/Resolving]

NARRATIVE: CASE EVENT DATE: 2012
